FAERS Safety Report 4403426-5 (Version None)
Quarter: 2004Q3

REPORT INFORMATION
  Report Type: 
  Country: None (occurrence: None)
  Receive Date: 20040720
  Receipt Date: 20040712
  Transmission Date: 20050211
  Serious: Yes (Death)
  Sender: FDA-Public Use
  Company Number: 2004216260US

PATIENT
  Age: 65 Year
  Sex: Male
  Weight: 77 kg

DRUGS (9)
  1. CAMPTOSAR [Suspect]
     Indication: NON-SMALL CELL LUNG CANCER
     Dosage: 85 MG/M2, CYCLIC, IV
     Route: 042
     Dates: start: 20030314, end: 20030425
  2. GEM 231 (RNA-DNA SECOND-GENERATION RI ANTISENSE HYB0165) [Suspect]
     Indication: NON-SMALL CELL LUNG CANCER
     Dosage: 60 MG/M2, DAILY, 5-DAY, CYCLIC, IV
     Route: 042
     Dates: start: 20030314
  3. XANAX [Concomitant]
  4. ZYRTEC [Concomitant]
  5. MS CONTIN [Concomitant]
  6. MS CONTIN [Concomitant]
  7. CELEBREX [Concomitant]
  8. COMBIVENT [Concomitant]
  9. COLBENEMID (PROBENECID, COLCHICINE) [Concomitant]

REACTIONS (10)
  - CONFUSIONAL STATE [None]
  - DIARRHOEA [None]
  - FATIGUE [None]
  - MALIGNANT NEOPLASM PROGRESSION [None]
  - NAUSEA [None]
  - NON-SMALL CELL LUNG CANCER METASTATIC [None]
  - PULMONARY EMBOLISM [None]
  - RESPIRATORY ARREST [None]
  - RESPIRATORY FAILURE [None]
  - VOMITING [None]
